FAERS Safety Report 12401460 (Version 2)
Quarter: 2019Q3

REPORT INFORMATION
  Report Type: Spontaneous
  Country: US (occurrence: US)
  Receive Date: 20160525
  Receipt Date: 20190905
  Transmission Date: 20191004
  Serious: No
  Sender: FDA-Public Use
  Company Number: US-BIOGEN-2016BI00232506

PATIENT
  Age: 46 Year
  Sex: Female

DRUGS (2)
  1. TECFIDERA [Suspect]
     Active Substance: DIMETHYL FUMARATE
     Indication: MULTIPLE SCLEROSIS
     Route: 065
     Dates: start: 20150305, end: 20160316
  2. TECFIDERA [Suspect]
     Active Substance: DIMETHYL FUMARATE
     Route: 065
     Dates: start: 20150308, end: 20150417

REACTIONS (6)
  - Urticaria [Unknown]
  - Lip swelling [Recovered/Resolved]
  - Nasopharyngitis [Unknown]
  - Swelling face [Recovered/Resolved]
  - Dyspnoea [Unknown]
  - Choking sensation [Unknown]

NARRATIVE: CASE EVENT DATE: 20150308
